FAERS Safety Report 21441218 (Version 4)
Quarter: 2023Q1

REPORT INFORMATION
  Report Type: Report from Study
  Country: CN (occurrence: CN)
  Receive Date: 20221011
  Receipt Date: 20230109
  Transmission Date: 20230417
  Serious: Yes (Hospitalization, Other)
  Sender: FDA-Public Use
  Company Number: CN-TAKEDA-2022TUS072723

PATIENT
  Age: 23 Year
  Sex: Female
  Weight: 51 kg

DRUGS (3)
  1. VEDOLIZUMAB [Suspect]
     Active Substance: VEDOLIZUMAB
     Indication: Crohn^s disease
     Dosage: 300 MILLIGRAM
     Route: 042
     Dates: start: 20220712
  2. METRONIDAZOLE [Concomitant]
     Active Substance: METRONIDAZOLE
     Dosage: 500 MILLIGRAM, BID
     Route: 042
     Dates: start: 20220929, end: 20221105
  3. CEFOPERAZONE\TAZOBACTAM SODIUM [Concomitant]
     Active Substance: CEFOPERAZONE\TAZOBACTAM SODIUM
     Dosage: 2000 MILLIGRAM, TID
     Route: 042
     Dates: start: 20220929, end: 20221105

REACTIONS (2)
  - Abdominal infection [Recovered/Resolved]
  - Anal fistula [Recovering/Resolving]

NARRATIVE: CASE EVENT DATE: 20220919
